FAERS Safety Report 7815493 (Version 4)
Quarter: 2013Q3

REPORT INFORMATION
  Report Type: Report from Study
  Country: US (occurrence: US)
  Receive Date: 20110216
  Receipt Date: 20130802
  Transmission Date: 20140515
  Serious: Yes (Other)
  Sender: FDA-Public Use
  Company Number: PHHY2010US78040

PATIENT
  Age: 38 Year
  Sex: Female
  Weight: 116 kg

DRUGS (8)
  1. EXJADE [Suspect]
     Indication: SICKLE CELL ANAEMIA
     Dosage: 2000 MG, DAILY
     Route: 048
     Dates: start: 20080201
  2. VITAMIN B COMPLEX [Concomitant]
  3. ZONEGRAN [Concomitant]
  4. PREDNISONE [Concomitant]
  5. KEPPRA [Concomitant]
  6. VITAMIN C [Concomitant]
  7. PRILOSEC [Concomitant]
  8. TRILEPTAL ^CIBA-GEIGY^ [Concomitant]

REACTIONS (6)
  - Liver sarcoidosis [Not Recovered/Not Resolved]
  - Hepatic cyst [Not Recovered/Not Resolved]
  - Haematochezia [Not Recovered/Not Resolved]
  - Musculoskeletal discomfort [Not Recovered/Not Resolved]
  - Nausea [Not Recovered/Not Resolved]
  - Abdominal pain upper [Not Recovered/Not Resolved]
